FAERS Safety Report 19473003 (Version 5)
Quarter: 2023Q1

REPORT INFORMATION
  Report Type: Report from Study
  Country: DO (occurrence: DO)
  Receive Date: 20210629
  Receipt Date: 20230217
  Transmission Date: 20230417
  Serious: Yes (Hospitalization, Other)
  Sender: FDA-Public Use
  Company Number: NVSC2021DO120924

PATIENT
  Age: 40 Year
  Sex: Female

DRUGS (6)
  1. SECUKINUMAB [Suspect]
     Active Substance: SECUKINUMAB
     Indication: Ankylosing spondylitis
     Dosage: 150 MG, QMO
     Route: 058
     Dates: start: 20210214
  2. SECUKINUMAB [Suspect]
     Active Substance: SECUKINUMAB
     Dosage: 300 MG
     Route: 065
  3. SECUKINUMAB [Suspect]
     Active Substance: SECUKINUMAB
     Dosage: 300 MG, QMO
     Route: 058
     Dates: start: 20210325, end: 20220202
  4. CELECO [Concomitant]
     Indication: Product used for unknown indication
     Dosage: UNK, BID(400 EVERY 12 HOURS)
     Route: 065
  5. VITAMIN D NOS [Concomitant]
     Active Substance: VITAMIN D NOS
     Indication: Product used for unknown indication
     Dosage: UNK, QD
     Route: 065
  6. INSULIN NOS [Concomitant]
     Active Substance: INSULIN NOS
     Indication: Product used for unknown indication
     Dosage: UNK (80 UNITS, SYRINGE)
     Route: 065

REACTIONS (19)
  - Malaise [Not Recovered/Not Resolved]
  - Pain [Unknown]
  - Myelitis [Unknown]
  - Ankylosing spondylitis [Not Recovered/Not Resolved]
  - Platelet count increased [Unknown]
  - Fibromyalgia [Not Recovered/Not Resolved]
  - Polymerase chain reaction [Not Recovered/Not Resolved]
  - Skin discomfort [Unknown]
  - Joint swelling [Not Recovered/Not Resolved]
  - Arthralgia [Unknown]
  - Dizziness [Unknown]
  - Musculoskeletal discomfort [Unknown]
  - Limb discomfort [Unknown]
  - Discouragement [Unknown]
  - Feeling abnormal [Unknown]
  - Inflammation [Unknown]
  - Blood thyroid stimulating hormone increased [Unknown]
  - Nausea [Unknown]
  - Product availability issue [Unknown]

NARRATIVE: CASE EVENT DATE: 20210524
